FAERS Safety Report 13202310 (Version 1)
Quarter: 2017Q1

REPORT INFORMATION
  Report Type: Report from Study
  Country: US (occurrence: US)
  Receive Date: 20170208
  Receipt Date: 20170208
  Transmission Date: 20170428
  Serious: No
  Sender: FDA-Public Use
  Company Number: US-AMGEN-USASL2016077663

PATIENT
  Age: 44 Year
  Sex: Male

DRUGS (23)
  1. AVASTIN [Suspect]
     Active Substance: BEVACIZUMAB
     Indication: BRAIN NEOPLASM MALIGNANT
     Dosage: 10 MG/KG, UNK, (820 MG,1 IN 2 WK)
     Route: 042
     Dates: start: 20070828
  2. ARANESP [Concomitant]
     Active Substance: DARBEPOETIN ALFA
     Dosage: UNK, 300
     Route: 042
  3. BENADRYL [Concomitant]
     Active Substance: DIPHENHYDRAMINE HYDROCHLORIDE
     Dosage: 50 MG, UNK
     Route: 042
  4. ATROPINE. [Concomitant]
     Active Substance: ATROPINE
     Dosage: 0.1 MG, UNK
     Route: 042
  5. SANDOSTATIN [Concomitant]
     Active Substance: OCTREOTIDE ACETATE
     Dosage: 200 MG, UNK
     Route: 058
  6. AVASTIN [Suspect]
     Active Substance: BEVACIZUMAB
     Dosage: 820 MG, Q2WK
     Route: 042
     Dates: start: 20071107
  7. AVASTIN [Suspect]
     Active Substance: BEVACIZUMAB
     Dosage: 820 MG, Q2WK
     Route: 042
     Dates: start: 20071025
  8. AVASTIN [Suspect]
     Active Substance: BEVACIZUMAB
     Dosage: 820 MG, Q2WK
     Route: 042
     Dates: start: 20071125
  9. TEMODAR [Concomitant]
     Active Substance: TEMOZOLOMIDE
     Dosage: 400 MG, UNK
  10. CARBOPLATIN. [Concomitant]
     Active Substance: CARBOPLATIN
     Dosage: 200 MG, UNK
     Route: 042
  11. ETOPOSIDE. [Concomitant]
     Active Substance: ETOPOSIDE
     Dosage: UNK, 200
  12. AVASTIN [Suspect]
     Active Substance: BEVACIZUMAB
     Dosage: 820 MG, Q2WK
     Route: 042
     Dates: start: 20071011
  13. DECADRON [Concomitant]
     Active Substance: DEXAMETHASONE
     Dosage: 10 MG, UNK
     Route: 042
  14. DILAUDID [Concomitant]
     Active Substance: HYDROMORPHONE HYDROCHLORIDE
     Dosage: 1 MG, UNK
     Route: 042
  15. ANZEMET [Concomitant]
     Active Substance: DOLASETRON MESYLATE
     Dosage: 100 MG, UNK
     Route: 042
  16. PROCRIT [Concomitant]
     Active Substance: ERYTHROPOIETIN
     Dosage: UNK, 80000
     Route: 042
  17. TRINOTECAN [Concomitant]
     Active Substance: IRINOTECAN HYDROCHLORIDE
     Dosage: UNK MG/M2, UNK
     Route: 042
  18. NEULASTA [Suspect]
     Active Substance: PEGFILGRASTIM
     Indication: PRODUCT USED FOR UNKNOWN INDICATION
     Dosage: 6 MG, UNK
     Route: 058
  19. AVASTIN [Suspect]
     Active Substance: BEVACIZUMAB
     Dosage: 820 MG, Q2WK
     Route: 042
     Dates: start: 20070925
  20. CPT-11 [Concomitant]
     Active Substance: IRINOTECAN
     Dosage: 400 MG, UNK
     Route: 042
  21. BICNU [Concomitant]
     Active Substance: CARMUSTINE
     Dosage: 60 MG, UNK
     Route: 042
  22. TAXOL [Concomitant]
     Active Substance: PACLITAXEL
     Dosage: 350 MG, BID
     Route: 042
  23. ALOXI [Concomitant]
     Active Substance: PALONOSETRON HYDROCHLORIDE
     Dosage: 0.25 UNK, UNK

REACTIONS (3)
  - Musculoskeletal chest pain [Recovered/Resolved]
  - Diarrhoea [Unknown]
  - Abdominal pain [Recovered/Resolved]

NARRATIVE: CASE EVENT DATE: 20071011
